FAERS Safety Report 5909882-5 (Version None)
Quarter: 2008Q4

REPORT INFORMATION
  Report Type: 
  Country: None (occurrence: None)
  Receive Date: 20081003
  Receipt Date: 20081003
  Transmission Date: 20090506
  Serious: Yes (Life-Threatening, Hospitalization)
  Sender: FDA-Public Use
  Company Number: None

PATIENT
  Age: 26 Year

DRUGS (1)
  1. DIVALPROEX SODIUM [Suspect]
     Indication: POST-TRAUMATIC STRESS DISORDER
     Dosage: 1000 MG EVERY DAY PO
     Route: 048
     Dates: start: 20080924, end: 20080930

REACTIONS (7)
  - CONFUSIONAL STATE [None]
  - DIZZINESS [None]
  - MENTAL STATUS CHANGES [None]
  - MYDRIASIS [None]
  - POISONING [None]
  - SOMNOLENCE [None]
  - TACHYCARDIA [None]
